FAERS Safety Report 23290960 (Version 1)
Quarter: 2023Q4

REPORT INFORMATION
  Report Type: Spontaneous
  Country: RO (occurrence: RO)
  Receive Date: 20231213
  Receipt Date: 20231213
  Transmission Date: 20240109
  Serious: Yes (Other)
  Sender: FDA-Public Use
  Company Number: RO-AMGEN-ROUSP2023217602

PATIENT
  Age: 64 Year
  Sex: Female
  Weight: 94 kg

DRUGS (4)
  1. VECTIBIX [Suspect]
     Active Substance: PANITUMUMAB
     Indication: Colorectal cancer metastatic
     Dosage: UNK
     Route: 042
     Dates: start: 201707
  2. LEUCOVORIN [Concomitant]
     Active Substance: LEUCOVORIN\LEUCOVORIN CALCIUM
     Dosage: UNK
     Route: 065
     Dates: start: 201707
  3. FLUOROURACIL [Concomitant]
     Active Substance: FLUOROURACIL
     Dosage: UNK
     Route: 065
     Dates: start: 201707
  4. OXALIPLATIN [Concomitant]
     Active Substance: OXALIPLATIN
     Dosage: UNK
     Route: 065
     Dates: start: 201707

REACTIONS (6)
  - Neutropenia [Unknown]
  - Erythroid dysplasia [Unknown]
  - Thrombosis [Unknown]
  - Skin toxicity [Unknown]
  - Rash [Unknown]
  - Hypocalcaemia [Unknown]

NARRATIVE: CASE EVENT DATE: 20180901
